FAERS Safety Report 9291016 (Version 1)
Quarter: 2013Q2

REPORT INFORMATION
  Report Type: Spontaneous
  Country: FR (occurrence: FR)
  Receive Date: 20130515
  Receipt Date: 20130515
  Transmission Date: 20140414
  Serious: Yes (Life-Threatening, Other)
  Sender: FDA-Public Use
  Company Number: FR-009507513-1305FRA002161

PATIENT
  Age: 23 Year
  Sex: Female

DRUGS (1)
  1. VARNOLINE [Suspect]
     Indication: ORAL CONTRACEPTION
     Dosage: UNK
     Route: 048
     Dates: start: 201209, end: 20130221

REACTIONS (5)
  - Pulmonary embolism [Recovered/Resolved]
  - Malaise [Recovered/Resolved]
  - Loss of consciousness [Recovered/Resolved]
  - Hypotension [Recovered/Resolved]
  - Dyspnoea [Recovered/Resolved]
